FAERS Safety Report 7728432-4 (Version None)
Quarter: 2011Q3

REPORT INFORMATION
  Report Type: 
  Country: None (occurrence: None)
  Receive Date: 20110905
  Receipt Date: 20110825
  Transmission Date: 20111222
  Serious: Yes (Other)
  Sender: FDA-Public Use
  Company Number: US-AMGEN-USASP2011043810

PATIENT
  Age: 56 Year
  Sex: Female

DRUGS (1)
  1. ENBREL [Suspect]
     Indication: RHEUMATOID ARTHRITIS
     Dosage: 50 MG, QWK
     Dates: start: 20100915

REACTIONS (7)
  - INCREASED TENDENCY TO BRUISE [None]
  - CORONARY ARTERY OCCLUSION [None]
  - MELANOCYTIC NAEVUS [None]
  - URINARY BLADDER HAEMORRHAGE [None]
  - INJECTION SITE HAEMORRHAGE [None]
  - CELLULITIS [None]
  - CYSTITIS [None]
